FAERS Safety Report 20986940 (Version 1)
Quarter: 2022Q2

REPORT INFORMATION
  Report Type: Spontaneous
  Country: CN (occurrence: CN)
  Receive Date: 20220621
  Receipt Date: 20220621
  Transmission Date: 20220720
  Serious: Yes (Other)
  Sender: FDA-Public Use
  Company Number: CN-PFIZER INC-PV202200004087

PATIENT
  Age: 66 Year
  Sex: Female
  Weight: 80 kg

DRUGS (2)
  1. AMLODIPINE BESYLATE [Suspect]
     Active Substance: AMLODIPINE BESYLATE
     Indication: Hypertension
     Dosage: 5 MG, 1X/DAY
     Route: 048
     Dates: start: 20220601, end: 20220607
  2. TELMISARTAN [Concomitant]
     Active Substance: TELMISARTAN
     Indication: Hypertension
     Dosage: 40 MG, 1X/DAY

REACTIONS (7)
  - Respiratory rate increased [Unknown]
  - Heart rate decreased [Unknown]
  - Abdominal pain [Unknown]
  - Diarrhoea [Unknown]
  - Vomiting [Unknown]
  - Asthenia [Unknown]
  - Vertigo [Unknown]
